FAERS Safety Report 5826291-8 (Version None)
Quarter: 2008Q3

REPORT INFORMATION
  Report Type: 
  Country: None (occurrence: None)
  Receive Date: 20080729
  Receipt Date: 20080717
  Transmission Date: 20090109
  Serious: Yes (Other)
  Sender: FDA-Public Use
  Company Number: US-PFIZER INC-2008060124

PATIENT
  Sex: Female
  Weight: 145 kg

DRUGS (11)
  1. SUTENT [Suspect]
     Indication: METASTATIC RENAL CELL CARCINOMA
     Route: 048
     Dates: start: 20080625, end: 20080701
  2. ATENOLOL [Concomitant]
  3. SYNTHROID [Concomitant]
  4. PROCARDIA [Concomitant]
  5. ZOLOFT [Concomitant]
  6. VITAMIN B-12 [Concomitant]
  7. VITAMIN TAB [Concomitant]
  8. ACETYLSALICYLIC ACID SRT [Concomitant]
  9. DUONEB [Concomitant]
  10. ADVAIR DISKUS 100/50 [Concomitant]
  11. SPIRIVA [Concomitant]

REACTIONS (11)
  - AGITATION [None]
  - ASTHENIA [None]
  - CANDIDIASIS [None]
  - DELUSION [None]
  - DYSPNOEA [None]
  - FATIGUE [None]
  - FRUSTRATION [None]
  - HALLUCINATION [None]
  - HYPERSOMNIA [None]
  - MENTAL IMPAIRMENT [None]
  - ORAL PAIN [None]
